FAERS Safety Report 5408120-X (Version None)
Quarter: 2007Q3

REPORT INFORMATION
  Report Type: 
  Country: None (occurrence: None)
  Receive Date: 20070806
  Receipt Date: 20070806
  Transmission Date: 20080115
  Serious: Yes (Hospitalization)
  Sender: FDA-Public Use
  Company Number: None

PATIENT
  Age: 83 Year
  Sex: Male
  Weight: 68.2664 kg

DRUGS (3)
  1. CLOPIDOGREL [Suspect]
     Indication: CEREBROVASCULAR ACCIDENT PROPHYLAXIS
     Dosage: 75MG EVERY DAY PO
     Route: 048
     Dates: start: 20050822, end: 20070615
  2. NAPROXEN [Suspect]
     Indication: INFLAMMATION
     Dosage: 500MG BID PO
     Route: 048
     Dates: start: 20040611, end: 20070615
  3. NAPROXEN [Suspect]
     Indication: PAIN
     Dosage: 500MG BID PO
     Route: 048
     Dates: start: 20040611, end: 20070615

REACTIONS (3)
  - ASTHENIA [None]
  - DIZZINESS [None]
  - GASTRIC HAEMORRHAGE [None]
